FAERS Safety Report 14255670 (Version 1)
Quarter: 2017Q4

REPORT INFORMATION
  Report Type: Spontaneous
  Country: US (occurrence: US)
  Receive Date: 20171206
  Receipt Date: 20171206
  Transmission Date: 20180321
  Serious: Yes (Other)
  Sender: FDA-Public Use
  Company Number: US-JUBILANT CADISTA PHARMACEUTICALS-2017JUB00339

PATIENT
  Age: 79 Year
  Sex: Male
  Weight: 65.31 kg

DRUGS (8)
  1. METHYLPREDNISOLONE. [Suspect]
     Active Substance: METHYLPREDNISOLONE
     Indication: PERIPHERAL SWELLING
     Dosage: 24 MG, 1X/DAY
     Route: 048
     Dates: start: 20170905, end: 20170905
  2. METHYLPREDNISOLONE. [Suspect]
     Active Substance: METHYLPREDNISOLONE
     Indication: PERIPHERAL SWELLING
     Dosage: 40 MG, ONCE
     Dates: start: 20170904, end: 20170904
  3. METHYLPREDNISOLONE. [Suspect]
     Active Substance: METHYLPREDNISOLONE
     Indication: JOINT SWELLING
  4. NOVOLOG [Concomitant]
     Active Substance: INSULIN ASPART
     Dosage: 9 U, 1X/DAY IN THE EVENING
  5. CALCITRIOL. [Concomitant]
     Active Substance: CALCITRIOL
     Dosage: 0.5 MG, 1X/DAY
  6. METHYLPREDNISOLONE. [Suspect]
     Active Substance: METHYLPREDNISOLONE
     Indication: JOINT SWELLING
     Dosage: 16 MG, 1X/DAY
     Route: 048
     Dates: start: 20170906, end: 20170906
  7. NOVOLOG [Concomitant]
     Active Substance: INSULIN ASPART
     Dosage: 15 U, 1X/DAY IN THE MORNING
  8. RAMIPRIL. [Concomitant]
     Active Substance: RAMIPRIL
     Dosage: 2.5 MG, AS NEEDED

REACTIONS (2)
  - Blood glucose increased [Not Recovered/Not Resolved]
  - Intentional product use issue [Unknown]

NARRATIVE: CASE EVENT DATE: 20170905
